FAERS Safety Report 5365368-0 (Version None)
Quarter: 2007Q2

REPORT INFORMATION
  Report Type: 
  Country: None (occurrence: None)
  Receive Date: 20070621
  Receipt Date: 20070612
  Transmission Date: 20071010
  Serious: Yes (Life-Threatening)
  Sender: FDA-Public Use
  Company Number: JP-ROCHE-497730

PATIENT
  Age: 17 Year
  Sex: Male

DRUGS (4)
  1. TAMIFLU [Suspect]
     Route: 048
     Dates: start: 20051128, end: 20051128
  2. TAMIFLU [Suspect]
     Route: 048
     Dates: start: 20051129, end: 20051202
  3. TAMIFLU [Suspect]
     Route: 048
     Dates: start: 20051203, end: 20051203
  4. ANYRUME [Concomitant]
     Route: 048
     Dates: start: 20051128, end: 20051129

REACTIONS (1)
  - ABNORMAL BEHAVIOUR [None]
